FAERS Safety Report 5219096-2 (Version None)
Quarter: 2007Q1

REPORT INFORMATION
  Report Type: 
  Country: None (occurrence: None)
  Receive Date: 20070124
  Receipt Date: 20070124
  Transmission Date: 20070707
  Serious: Yes (Hospitalization)
  Sender: FDA-Public Use
  Company Number: None

PATIENT
  Age: 42 Year
  Sex: Female
  Weight: 56.6996 kg

DRUGS (1)
  1. CYMBALTA [Suspect]
     Indication: HEMIPLEGIA
     Dosage: 30 MG PO
     Route: 048
     Dates: start: 20061129

REACTIONS (2)
  - DYSARTHRIA [None]
  - HEMIPLEGIA [None]
